FAERS Safety Report 5419258-5 (Version None)
Quarter: 2007Q3

REPORT INFORMATION
  Report Type: 
  Country: None (occurrence: None)
  Receive Date: 20070816
  Receipt Date: 20070816
  Transmission Date: 20080115
  Serious: Yes (Other)
  Sender: FDA-Public Use
  Company Number: None

PATIENT
  Sex: Female
  Weight: 54.4316 kg

DRUGS (1)
  1. FLUCONAZOLE [Suspect]
     Indication: CANDIDIASIS
     Dosage: 150 MG ONE TAB WEEKLY X 4 WEEKS PO/ORAL
     Route: 048
     Dates: start: 20070731

REACTIONS (4)
  - LIP SWELLING [None]
  - ORAL MUCOSAL BLISTERING [None]
  - PHARYNGEAL OEDEMA [None]
  - SWOLLEN TONGUE [None]
